FAERS Safety Report 10449461 (Version 1)
Quarter: 2014Q3

REPORT INFORMATION
  Report Type: Spontaneous
  Country: JP (occurrence: JP)
  Receive Date: 20140912
  Receipt Date: 20140912
  Transmission Date: 20150326
  Serious: No
  Sender: FDA-Public Use
  Company Number: PHHY2011JP122853

PATIENT
  Age: 46 Year
  Sex: Male

DRUGS (4)
  1. SPRYCEL [Suspect]
     Active Substance: DASATINIB
     Dosage: 100 MG, UNK
     Dates: start: 201203, end: 201208
  2. TASIGNA [Suspect]
     Active Substance: NILOTINIB
     Indication: CHRONIC MYELOID LEUKAEMIA
     Dosage: 600 MG, UNK
     Dates: start: 201101, end: 201102
  3. SPRYCEL [Suspect]
     Active Substance: DASATINIB
     Dosage: UNK
     Dates: start: 201102, end: 201109
  4. TASIGNA [Suspect]
     Active Substance: NILOTINIB
     Dosage: 600 MG, UNK
     Dates: start: 201109, end: 201112

REACTIONS (3)
  - Depression [Unknown]
  - Blood glucose increased [Unknown]
  - Blood bilirubin increased [Unknown]

NARRATIVE: CASE EVENT DATE: 201101
